FAERS Safety Report 13634160 (Version 1)
Quarter: 2017Q2

REPORT INFORMATION
  Report Type: Spontaneous
  Country: US (occurrence: US)
  Receive Date: 20170531
  Receipt Date: 20170531
  Transmission Date: 20170830
  Serious: No
  Sender: FDA-Public Use
  Company Number: US-ASTELLAS-1608458

PATIENT
  Sex: Female
  Weight: 55.75 kg

DRUGS (21)
  1. FOLIC ACID. [Concomitant]
     Active Substance: FOLIC ACID
     Route: 048
  2. AMLODIPINE BESILATE [Concomitant]
     Active Substance: AMLODIPINE BESYLATE
     Route: 048
  3. ELIQUIS [Concomitant]
     Active Substance: APIXABAN
     Route: 065
  4. DEXAMETHASON [Concomitant]
     Active Substance: DEXAMETHASONE
     Route: 065
  5. MULTAQ [Concomitant]
     Active Substance: DRONEDARONE
     Route: 065
  6. DIOVAN [Concomitant]
     Active Substance: VALSARTAN
     Route: 048
  7. WHEAT GERM OIL [Concomitant]
     Active Substance: WHEAT GERM OIL
     Route: 048
  8. CEFDINIR. [Concomitant]
     Active Substance: CEFDINIR
     Route: 065
  9. ISOSORBIDE MONONITRATE. [Concomitant]
     Active Substance: ISOSORBIDE MONONITRATE
     Route: 048
  10. TAMIFLU [Concomitant]
     Active Substance: OSELTAMIVIR PHOSPHATE
     Dosage: 12 MG/ML
     Route: 048
  11. LEVOTHYROXINE SODIUM. [Concomitant]
     Active Substance: LEVOTHYROXINE SODIUM
     Route: 048
  12. AZITHROMYCIN ANHYDROUS. [Concomitant]
     Active Substance: AZITHROMYCIN ANHYDROUS
     Route: 065
  13. TARCEVA [Suspect]
     Active Substance: ERLOTINIB HYDROCHLORIDE
     Indication: BONE CANCER
     Route: 048
     Dates: start: 201503
  14. ATORVASTATIN [Concomitant]
     Active Substance: ATORVASTATIN
     Route: 065
  15. DOXYCYCLINE. [Concomitant]
     Active Substance: DOXYCYCLINE
     Route: 048
  16. VENTOLINE AEROSOL [Concomitant]
     Active Substance: ALBUTEROL
     Route: 065
  17. CEPHALEXIN. [Concomitant]
     Active Substance: CEPHALEXIN
     Route: 065
  18. XARELTO [Concomitant]
     Active Substance: RIVAROXABAN
     Dosage: AT BEDTIME
     Route: 048
  19. CARVEDILOL. [Concomitant]
     Active Substance: CARVEDILOL
     Route: 065
  20. AMIODARONE HCL [Concomitant]
     Active Substance: AMIODARONE HYDROCHLORIDE
     Route: 048
  21. HYDROCODONE BITARTRATE/ACETAMINOPHEN [Concomitant]
     Active Substance: ACETAMINOPHEN\HYDROCODONE BITARTRATE
     Route: 048

REACTIONS (2)
  - Disease progression [Unknown]
  - Drug ineffective [Unknown]
